FAERS Safety Report 9227672 (Version 1)
Quarter: 2013Q1

REPORT INFORMATION
  Report Type: Spontaneous
  Country: US (occurrence: None)
  Receive Date: 20121012
  Receipt Date: 20121012
  Transmission Date: 20140127
  Serious: Yes (Other)
  Sender: FDA-Public Use
  Company Number: 1000037120

PATIENT
  Age: 31 Year
  Sex: Female

DRUGS (1)
  1. LEXAPRO [Suspect]
     Indication: ANXIETY
     Route: 048
     Dates: start: 20120712, end: 20120713

REACTIONS (6)
  - Suicidal ideation [None]
  - Dizziness [None]
  - Nausea [None]
  - Hallucination [None]
  - Hypoaesthesia [None]
  - Tachyphrenia [None]
